FAERS Safety Report 7701373-4 (Version None)
Quarter: 2011Q3

REPORT INFORMATION
  Report Type: 
  Country: None (occurrence: None)
  Receive Date: 20110822
  Receipt Date: 20110808
  Transmission Date: 20111222
  Serious: Yes (Death, Other)
  Sender: FDA-Public Use
  Company Number: US-AMGEN-USASP2011040544

PATIENT
  Age: 54 Year
  Sex: Male
  Weight: 68.481 kg

DRUGS (16)
  1. KLONOPIN [Concomitant]
     Dosage: 1 MG, QHS
  2. MELATONIN [Concomitant]
  3. STOOL SOFTENER [Concomitant]
  4. D5LRS [Concomitant]
     Dosage: 1000 ML, UNK
  5. ANCEF                              /00288502/ [Concomitant]
     Dosage: 1 G, UNK
     Route: 042
  6. OXYCONTIN [Suspect]
     Dosage: 30 MG, Q8H
  7. CLINDAMYCIN [Concomitant]
     Dosage: 900 MG, UNK
     Route: 042
  8. VANCOMYCIN [Concomitant]
     Dosage: 1 G, UNK
     Route: 042
  9. ROBAXIN [Concomitant]
     Dosage: UNK
  10. PEPCID [Concomitant]
     Dosage: 20 MG, QHS
  11. MORPHINE SULFATE [Concomitant]
     Dosage: 300 MG, Q8H
  12. REQUIP [Concomitant]
     Dosage: 3 MG, UNK
  13. ASPIRIN [Concomitant]
  14. NEURONTIN [Concomitant]
     Dosage: 400 MG, TID
  15. PROCRIT [Suspect]
     Indication: HAEMORRHAGE
     Dosage: 40000 IU, UNK
     Dates: start: 20090916
  16. VIAGRA [Concomitant]

REACTIONS (10)
  - MYOCARDIAL FIBROSIS [None]
  - PULMONARY FIBROSIS [None]
  - EMPHYSEMA [None]
  - PULMONARY EMBOLISM [None]
  - ACCIDENTAL DEATH [None]
  - DEEP VEIN THROMBOSIS [None]
  - HEPATIC STEATOSIS [None]
  - HUMERUS FRACTURE [None]
  - THROMBOSIS [None]
  - CARDIO-RESPIRATORY ARREST [None]
